FAERS Safety Report 8083823-X (Version None)
Quarter: 2012Q1

REPORT INFORMATION
  Report Type: 
  Country: None (occurrence: None)
  Receive Date: 20120128
  Receipt Date: 20110125
  Transmission Date: 20120608
  Serious: No
  Sender: FDA-Public Use
  Company Number: US-ABBOTT-11P-163-0701176-00

PATIENT
  Sex: Female
  Weight: 63.56 kg

DRUGS (5)
  1. TRAMADOL HCL [Concomitant]
     Indication: PRODUCT USED FOR UNKNOWN INDICATION
  2. MELOXICAM [Concomitant]
     Indication: PRODUCT USED FOR UNKNOWN INDICATION
  3. HUMIRA [Suspect]
     Indication: ANKYLOSING SPONDYLITIS
     Route: 058
     Dates: start: 20090901, end: 20101201
  4. CYCLOBENZAPRINE [Concomitant]
     Indication: PRODUCT USED FOR UNKNOWN INDICATION
     Dosage: AS NEEDED
  5. HUMIRA [Suspect]
     Route: 058
     Dates: start: 20101201

REACTIONS (5)
  - PAIN [None]
  - PAIN IN EXTREMITY [None]
  - MOBILITY DECREASED [None]
  - OEDEMA PERIPHERAL [None]
  - JOINT SWELLING [None]
